FAERS Safety Report 7405814-1 (Version None)
Quarter: 2011Q2

REPORT INFORMATION
  Report Type: 
  Country: None (occurrence: None)
  Receive Date: 20110411
  Receipt Date: 20110401
  Transmission Date: 20111010
  Serious: Yes (Life-Threatening, Hospitalization)
  Sender: FDA-Public Use
  Company Number: DE-ROCHE-769804

PATIENT
  Sex: Male
  Weight: 76 kg

DRUGS (4)
  1. TRAMAL [Concomitant]
     Route: 048
  2. DICLOFENAC [Concomitant]
     Route: 048
  3. INSULIN [Concomitant]
     Indication: DIABETES MELLITUS
     Route: 058
  4. PEGINTERFERON ALFA-2A [Suspect]
     Route: 058
     Dates: start: 20101008

REACTIONS (1)
  - ANGIODYSPLASIA [None]
